FAERS Safety Report 17769807 (Version 2)
Quarter: 2020Q2

REPORT INFORMATION
  Report Type: Spontaneous
  Country: US (occurrence: US)
  Receive Date: 20200512
  Receipt Date: 20200512
  Transmission Date: 20200714
  Serious: No
  Sender: FDA-Public Use
  Company Number: US-PFIZER INC-2020188590

PATIENT
  Age: 65 Year
  Sex: Male
  Weight: 50.8 kg

DRUGS (3)
  1. PREGABALIN. [Suspect]
     Active Substance: PREGABALIN
     Indication: FIBROMYALGIA
     Dosage: 50 MG, 2X/DAY(2- 25MG TWICE A DAY)
     Route: 048
     Dates: start: 201912
  2. PREGABALIN. [Suspect]
     Active Substance: PREGABALIN
     Indication: STENOSIS
  3. PREGABALIN. [Suspect]
     Active Substance: PREGABALIN
     Indication: NEURALGIA

REACTIONS (2)
  - Drug ineffective [Unknown]
  - Spinal pain [Unknown]

NARRATIVE: CASE EVENT DATE: 201912
